FAERS Safety Report 17790530 (Version 2)
Quarter: 2020Q3

REPORT INFORMATION
  Report Type: Spontaneous
  Country: US (occurrence: US)
  Receive Date: 20200515
  Receipt Date: 20200817
  Transmission Date: 20201102
  Serious: Yes (Life-Threatening, Hospitalization)
  Sender: FDA-Public Use
  Company Number: US-EMCURE PHARMACEUTICALS LTD-2020-EPL-000603

PATIENT
  Age: 44 Year
  Sex: Female

DRUGS (2)
  1. CLONAZEPAM. [Suspect]
     Active Substance: CLONAZEPAM
     Indication: RESTLESS LEGS SYNDROME
     Dosage: 0.25 MILLIGRAM, TAKEN 90 TABLETS WITH THE INTENT TO COMMIT SUICIDE
  2. VERAPAMIL HYDROCHLORIDE. [Suspect]
     Active Substance: VERAPAMIL HYDROCHLORIDE
     Indication: MIGRAINE PROPHYLAXIS
     Dosage: 125 MILLIGRAM, TAKEN 60 TABLETS WITH THE INTENT TO COMMIT SUICIDE

REACTIONS (12)
  - Atrioventricular dissociation [Recovering/Resolving]
  - Intentional overdose [Unknown]
  - Electrocardiogram QRS complex prolonged [Recovering/Resolving]
  - Hypotension [Recovering/Resolving]
  - Aspartate aminotransferase increased [Recovering/Resolving]
  - Suicide attempt [Unknown]
  - Mental status changes [Recovering/Resolving]
  - Off label use [Unknown]
  - Toxicity to various agents [Recovering/Resolving]
  - Acute respiratory distress syndrome [Recovering/Resolving]
  - Dysarthria [Recovering/Resolving]
  - Bradycardia [Recovering/Resolving]
